FAERS Safety Report 15240523 (Version 2)
Quarter: 2018Q3

REPORT INFORMATION
  Report Type: Spontaneous
  Country: GB (occurrence: GB)
  Receive Date: 20180804
  Receipt Date: 20180807
  Transmission Date: 20181010
  Serious: Yes (Life-Threatening, Other)
  Sender: FDA-Public Use
  Company Number: GB-TEVA-814223ACC

PATIENT
  Age: 19 Year
  Sex: Female

DRUGS (1)
  1. VALPROATE SODIUM. [Suspect]
     Active Substance: VALPROATE SODIUM
     Route: 065

REACTIONS (9)
  - Spina bifida [Unknown]
  - General physical health deterioration [Unknown]
  - Cerebral disorder [Unknown]
  - Foetal exposure during pregnancy [Unknown]
  - Brain injury [Unknown]
  - Scoliosis [Unknown]
  - Terminal state [Unknown]
  - Brain oedema [Unknown]
  - Seizure [Unknown]
